FAERS Safety Report 7173287-2 (Version None)
Quarter: 2010Q4

REPORT INFORMATION
  Report Type: 
  Country: None (occurrence: None)
  Receive Date: 20101203
  Receipt Date: 20101113
  Transmission Date: 20110411
  Serious: Yes (Other)
  Sender: FDA-Public Use
  Company Number: 2010AT000095

PATIENT
  Age: 72 Year
  Sex: Male

DRUGS (5)
  1. ISOKET (ISOSORBIDE DINITRATE) [Suspect]
     Dosage: 40 MG, TID
     Dates: start: 20100101
  2. BACTRIM [Concomitant]
  3. TORSEMIDE [Concomitant]
  4. ACETYLSALICYLIC ACID SRT [Concomitant]
  5. ALLOPURINOL [Concomitant]

REACTIONS (4)
  - BLOOD PRESSURE ABNORMAL [None]
  - DYSPNOEA [None]
  - HEART RATE INCREASED [None]
  - ILL-DEFINED DISORDER [None]
